FAERS Safety Report 7099753-6 (Version None)
Quarter: 2010Q4

REPORT INFORMATION
  Report Type: 
  Country: None (occurrence: None)
  Receive Date: 20101112
  Receipt Date: 20101111
  Transmission Date: 20110411
  Serious: Yes (Hospitalization)
  Sender: FDA-Public Use
  Company Number: CA-SP-2010-06443

PATIENT
  Sex: Male

DRUGS (1)
  1. IMMUCYST [Suspect]
     Indication: BLADDER CANCER STAGE 0, WITH CANCER IN SITU
     Dosage: NOT REPORTED
     Route: 065

REACTIONS (4)
  - HYPOTENSION [None]
  - PYREXIA [None]
  - SEPSIS [None]
  - TACHYCARDIA [None]
